FAERS Safety Report 17272994 (Version 1)
Quarter: 2020Q1

REPORT INFORMATION
  Report Type: Spontaneous
  Country: US (occurrence: US)
  Receive Date: 20191223
  Receipt Date: 20191223
  Transmission Date: 20200409
  Serious: Yes (Hospitalization)
  Sender: FDA-Public Use
  Company Number: None

PATIENT
  Age: 73 Year
  Sex: Male

DRUGS (1)
  1. INSULIN (INSULIN, GLARGINE, HUMAN 100UNIT/ML INJ, SOLOSTAR, 3ML) [Suspect]
     Active Substance: INSULIN GLARGINE
     Indication: DIABETES MELLITUS
     Route: 058
     Dates: start: 20190717, end: 20191007

REACTIONS (4)
  - Asthenia [None]
  - Confusional state [None]
  - Blood glucose decreased [None]
  - Oesophageal adenocarcinoma [None]

NARRATIVE: CASE EVENT DATE: 20191007
